FAERS Safety Report 24128461 (Version 1)
Quarter: 2024Q3

REPORT INFORMATION
  Report Type: Spontaneous
  Country: IT (occurrence: IT)
  Receive Date: 20240723
  Receipt Date: 20240723
  Transmission Date: 20241017
  Serious: Yes (Other)
  Sender: NOVARTIS
  Company Number: IT-002147023-NVSC2024IT131316

PATIENT
  Sex: Female

DRUGS (1)
  1. LUTATHERA [Suspect]
     Active Substance: LUTETIUM OXODOTREOTIDE LU-177
     Indication: Neuroendocrine tumour
     Dosage: 7400 MBQ (EVERY 8 WEEKS)
     Route: 065

REACTIONS (4)
  - Thrombocytopenia [Unknown]
  - Anisocytosis [Unknown]
  - Hypochromasia [Unknown]
  - Unevaluable event [Recovered/Resolved with Sequelae]
